FAERS Safety Report 16439935 (Version 1)
Quarter: 2019Q3

REPORT INFORMATION
  Report Type: Spontaneous
  Country: US (occurrence: US)
  Receive Date: 20190616
  Receipt Date: 20190616
  Transmission Date: 20191004
  Serious: Yes (Hospitalization)
  Sender: FDA-Public Use
  Company Number: None

PATIENT
  Age: 68 Year
  Sex: Female

DRUGS (9)
  1. FOLIC ACID 1000 MCG [Concomitant]
  2. METHOTREXATE 2.5 MG [Concomitant]
     Active Substance: METHOTREXATE
  3. FORTEO [Suspect]
     Active Substance: TERIPARATIDE
     Indication: SENILE OSTEOPOROSIS
     Route: 058
     Dates: start: 20171220
  4. PROAIR HFA [Concomitant]
     Active Substance: ALBUTEROL SULFATE
  5. BRILINTA [Concomitant]
     Active Substance: TICAGRELOR
  6. CHANTIX 0.5/1.0 MG [Concomitant]
  7. FLUTICASONE 50 MCG SPRAY [Concomitant]
  8. ENBREL [Suspect]
     Active Substance: ETANERCEPT
     Indication: POLYARTHRITIS
     Dosage: ?          OTHER FREQUENCY:ONCE EVERY WEEK;?
     Route: 058
     Dates: start: 20180125
  9. ROSUVASTATIN 20 MG [Concomitant]

REACTIONS (1)
  - Stent placement [None]

NARRATIVE: CASE EVENT DATE: 20190610
